FAERS Safety Report 18717604 (Version 1)
Quarter: 2021Q1

REPORT INFORMATION
  Report Type: Spontaneous
  Country: DE (occurrence: DE)
  Receive Date: 20210108
  Receipt Date: 20210108
  Transmission Date: 20210419
  Serious: Yes (Life-Threatening, Hospitalization, Other)
  Sender: FDA-Public Use
  Company Number: DE-HRARD-2020000953

PATIENT
  Age: 34 Year
  Sex: Female

DRUGS (1)
  1. MITOTANE [Suspect]
     Active Substance: MITOTANE
     Indication: ADRENAL GLAND CANCER
     Route: 048
     Dates: start: 201905, end: 202011

REACTIONS (4)
  - Herpes simplex reactivation [Recovered/Resolved]
  - Staphylococcal bacteraemia [Recovered/Resolved]
  - Oral candidiasis [Recovered/Resolved]
  - Mucosal inflammation [Recovered/Resolved]

NARRATIVE: CASE EVENT DATE: 20201128
